FAERS Safety Report 6557539-2 (Version None)
Quarter: 2010Q1

REPORT INFORMATION
  Report Type: 
  Country: None (occurrence: None)
  Receive Date: 20100129
  Receipt Date: 20100125
  Transmission Date: 20100710
  Serious: Yes (Other)
  Sender: FDA-Public Use
  Company Number: US-ROCHE-681511

PATIENT
  Age: 17 Year
  Sex: Female

DRUGS (12)
  1. CELLCEPT [Suspect]
     Indication: PROPHYLAXIS AGAINST GRAFT VERSUS HOST DISEASE
     Route: 065
  2. VINCRISTINE [Concomitant]
     Indication: HEPATOSPLENIC T-CELL LYMPHOMA
  3. DAUNORUBICIN HCL [Concomitant]
     Indication: HEPATOSPLENIC T-CELL LYMPHOMA
  4. PREDNISONE [Concomitant]
     Indication: HEPATOSPLENIC T-CELL LYMPHOMA
  5. ONCASPAR [Concomitant]
     Indication: HEPATOSPLENIC T-CELL LYMPHOMA
     Dosage: DRUG: PEG-ASPARAGINASE
  6. METHOTREXATE [Concomitant]
     Indication: HEPATOSPLENIC T-CELL LYMPHOMA
     Dosage: ROUTE: INTRATHECAL
     Route: 050
  7. METHOTREXATE [Concomitant]
     Dosage: ROUTE: INTRAVENOUS, ON DAY +1, +2, +3 AND +4.
     Route: 050
  8. CYCLOSPORINE [Concomitant]
     Indication: PROPHYLAXIS AGAINST GRAFT VERSUS HOST DISEASE
  9. NEUPOGEN [Concomitant]
  10. FLUDARABINE [Concomitant]
     Dosage: SINGLE COURSE
  11. CYTARABINE [Concomitant]
     Dosage: ROUTE: INTRATHCAL
  12. CYTARABINE [Concomitant]
     Dosage: DRUG: CYTARABINE ARABINOSIDE, DOSE: 2 G/M2/DAY ON DAY 1-5

REACTIONS (1)
  - GASTROINTESTINAL TOXICITY [None]
